FAERS Safety Report 5220719-2 (Version None)
Quarter: 2007Q1

REPORT INFORMATION
  Report Type: 
  Country: None (occurrence: None)
  Receive Date: 20070125
  Receipt Date: 20070125
  Transmission Date: 20070707
  Serious: Yes (Hospitalization)
  Sender: FDA-Public Use
  Company Number: None

PATIENT
  Sex: Female
  Weight: 61.3 kg

DRUGS (1)
  1. TEMOZOLOMIDE [Suspect]
     Dosage: 2875 MG

REACTIONS (3)
  - ASTHENIA [None]
  - ATELECTASIS [None]
  - PRESYNCOPE [None]
